FAERS Safety Report 10220950 (Version 1)
Quarter: 2014Q2

REPORT INFORMATION
  Report Type: Spontaneous
  Country: JP (occurrence: JP)
  Receive Date: 20140606
  Receipt Date: 20140606
  Transmission Date: 20141212
  Serious: Yes (Other)
  Sender: FDA-Public Use
  Company Number: JP-ROCHE-1412416

PATIENT
  Sex: Female
  Weight: 60 kg

DRUGS (5)
  1. BONVIVA [Suspect]
     Indication: PRODUCT USED FOR UNKNOWN INDICATION
     Dosage: DOSAGE IS UNCERTAIN.
     Route: 042
     Dates: start: 20140310
  2. PRAVASTATIN SODIUM [Concomitant]
     Indication: ANGINA PECTORIS
     Dosage: REPORTED AS MEVARICH
     Route: 048
     Dates: start: 20070618
  3. EQUA [Concomitant]
     Indication: DIABETES MELLITUS
     Route: 048
     Dates: start: 20110509
  4. NITROPENT [Concomitant]
     Indication: ANGINA PECTORIS
     Dosage: ONLY AT 1X1-3 TIMES/DAY THORACODYNIA
     Route: 060
     Dates: start: 200706
  5. SYMBICORT [Concomitant]
     Indication: ASTHMA
     Route: 055
     Dates: start: 20101207

REACTIONS (1)
  - Pulpitis dental [Recovering/Resolving]
